FAERS Safety Report 9698021 (Version 1)
Quarter: 2013Q4

REPORT INFORMATION
  Report Type: Spontaneous
  Country: SZ (occurrence: None)
  Receive Date: 20131115
  Receipt Date: 20131115
  Transmission Date: 20140711
  Serious: Yes (Other)
  Sender: FDA-Public Use
  Company Number: 2012034288

PATIENT
  Age: 32 Year
  Sex: Female

DRUGS (4)
  1. PRIVIGEN [Suspect]
     Indication: POLYNEUROPATHY
     Dosage: 40 G QD, DOSE:  1G/KG, INFUSION SPEED:  250ML/HR, INTRAVEOUS (NOT OTHERWISE SPECIFIED)?
     Route: 042
     Dates: start: 20121217, end: 20121217
  2. PRIVIGEN [Suspect]
     Indication: MYELOPATHY
     Dosage: 40 G QD, DOSE:  1G/KG, INFUSION SPEED:  250ML/HR, INTRAVEOUS (NOT OTHERWISE SPECIFIED)?
     Route: 042
     Dates: start: 20121217, end: 20121217
  3. PRIVIGEN [Suspect]
     Indication: SKIN DISORDER
     Dosage: 40 G QD, DOSE:  1G/KG, INFUSION SPEED:  250ML/HR, INTRAVEOUS (NOT OTHERWISE SPECIFIED)?
     Route: 042
     Dates: start: 20121217, end: 20121217
  4. PRIVIGEN [Suspect]
     Indication: CYANOSIS
     Dosage: 40 G QD, DOSE:  1G/KG, INFUSION SPEED:  250ML/HR, INTRAVEOUS (NOT OTHERWISE SPECIFIED)?
     Route: 042
     Dates: start: 20121217, end: 20121217

REACTIONS (13)
  - Back pain [None]
  - Headache [None]
  - Feeling hot [None]
  - Hypoaesthesia [None]
  - Anxiety [None]
  - Pain in extremity [None]
  - Pain [None]
  - Off label use [None]
  - Drug ineffective [None]
  - Influenza like illness [None]
  - Infusion related reaction [None]
  - Paraesthesia [None]
  - Malaise [None]
